FAERS Safety Report 15250262 (Version 1)
Quarter: 2018Q3

REPORT INFORMATION
  Report Type: Spontaneous
  Country: US (occurrence: US)
  Receive Date: 20180807
  Receipt Date: 20180807
  Transmission Date: 20181010
  Serious: No
  Sender: FDA-Public Use
  Company Number: US-BEH-2018093465

PATIENT
  Sex: Female
  Weight: 97.51 kg

DRUGS (43)
  1. SODIUM CHLORIDE. [Concomitant]
     Active Substance: SODIUM CHLORIDE
  2. MULTIPLE VITAMINS [Concomitant]
     Active Substance: VITAMINS
  3. ZEMAIRA [Suspect]
     Active Substance: .ALPHA.1-PROTEINASE INHIBITOR HUMAN
     Indication: ALPHA-1 ANTI-TRYPSIN DEFICIENCY
     Dosage: 60 MG/KG, QW
     Route: 042
     Dates: start: 20031229
  4. DIPHENHYDRAMINE. [Concomitant]
     Active Substance: DIPHENHYDRAMINE
  5. CYCLOBENZAPRINE. [Concomitant]
     Active Substance: CYCLOBENZAPRINE
  6. EPIPEN [Concomitant]
     Active Substance: EPINEPHRINE
  7. VITAMIN C [Concomitant]
     Active Substance: ASCORBIC ACID
  8. CRANBERRY                          /01512301/ [Concomitant]
     Active Substance: CRANBERRY
  9. BIOTIN [Concomitant]
     Active Substance: BIOTIN
  10. ROZEREM [Concomitant]
     Active Substance: RAMELTEON
  11. PULMICORT TURBUHALER [Concomitant]
     Active Substance: BUDESONIDE
  12. NEXIUM [Concomitant]
     Active Substance: ESOMEPRAZOLE MAGNESIUM
  13. LMX                                /00033401/ [Concomitant]
  14. CEVIMELINE. [Concomitant]
     Active Substance: CEVIMELINE
  15. SYNTHROID [Concomitant]
     Active Substance: LEVOTHYROXINE SODIUM
  16. VITAMIN D3 [Concomitant]
     Active Substance: CHOLECALCIFEROL
  17. AMPICILLIN [Concomitant]
     Active Substance: AMPICILLIN
  18. TAMIFLU [Concomitant]
     Active Substance: OSELTAMIVIR PHOSPHATE
  19. CLINDAMYCIN. [Concomitant]
     Active Substance: CLINDAMYCIN
  20. ZEMAIRA [Suspect]
     Active Substance: .ALPHA.1-PROTEINASE INHIBITOR HUMAN
     Dosage: 60 MG/KG, UNK
     Route: 042
  21. BIAXIN [Concomitant]
     Active Substance: CLARITHROMYCIN
  22. TRAZODONE [Concomitant]
     Active Substance: TRAZODONE HYDROCHLORIDE
  23. MIRALAX [Concomitant]
     Active Substance: POLYETHYLENE GLYCOL 3350
  24. TYLENOL [Concomitant]
     Active Substance: ACETAMINOPHEN
  25. RESTASIS [Concomitant]
     Active Substance: CYCLOSPORINE
  26. SILYBUM MARIANUM [Concomitant]
     Active Substance: DIETARY SUPPLEMENT\HERBALS\MILK THISTLE
  27. LYRICA [Concomitant]
     Active Substance: PREGABALIN
  28. AMBIEN [Concomitant]
     Active Substance: ZOLPIDEM TARTRATE
  29. MAGNESIUM [Concomitant]
     Active Substance: MAGNESIUM
  30. PREDNISONE. [Concomitant]
     Active Substance: PREDNISONE
  31. AMOXICILLIN. [Concomitant]
     Active Substance: AMOXICILLIN
  32. CALCIUM [Concomitant]
     Active Substance: CALCIUM
  33. FERROUS GLUCONATE [Concomitant]
     Active Substance: FERROUS GLUCONATE
  34. METROGEL?VAGINAL [Concomitant]
     Active Substance: METRONIDAZOLE
  35. ATIVAN [Concomitant]
     Active Substance: LORAZEPAM
  36. TRAMADOL. [Concomitant]
     Active Substance: TRAMADOL
  37. VITAMIN B12 [Concomitant]
     Active Substance: CYANOCOBALAMIN
  38. EPINEPHRINE. [Concomitant]
     Active Substance: EPINEPHRINE
  39. ALBUTEROL                          /00139501/ [Concomitant]
     Active Substance: ALBUTEROL
  40. GUAIFENESIN. [Concomitant]
     Active Substance: GUAIFENESIN
  41. OMEGA 3                            /01333901/ [Concomitant]
     Active Substance: FISH OIL\TOCOPHEROL
  42. ADVAIR HFA [Concomitant]
     Active Substance: FLUTICASONE PROPIONATE\SALMETEROL XINAFOATE
  43. ALLEGRA?D                          /01367401/ [Concomitant]

REACTIONS (2)
  - Pain in extremity [Unknown]
  - Tenderness [Unknown]
